FAERS Safety Report 6234384-9 (Version None)
Quarter: 2009Q2

REPORT INFORMATION
  Report Type: 
  Country: None (occurrence: None)
  Receive Date: 20090615
  Receipt Date: 20090504
  Transmission Date: 20091009
  Serious: No
  Sender: FDA-Public Use
  Company Number: DSA_33594_2009

PATIENT
  Sex: Female

DRUGS (1)
  1. XENAZINE [Suspect]
     Indication: HUNTINGTON'S CHOREA
     Dosage: (18.25 MG QD, EVERY MORNING)
     Dates: start: 20090325, end: 20090502

REACTIONS (2)
  - HOT FLUSH [None]
  - INSOMNIA [None]
